FAERS Safety Report 9881222 (Version 2)
Quarter: 2014Q2

REPORT INFORMATION
  Report Type: Report from Study
  Country: BR (occurrence: BR)
  Receive Date: 20140207
  Receipt Date: 20140416
  Transmission Date: 20141212
  Serious: Yes (Other)
  Sender: FDA-Public Use
  Company Number: PHHY2014BR013762

PATIENT
  Sex: Female
  Weight: 89 kg

DRUGS (3)
  1. RASILEZ AMLO [Suspect]
     Indication: HYPERTENSION
     Dosage: 1 DF (300 MG ALIS, 5 MG AMLO) DAILY IN THE MORNING
     Route: 048
     Dates: start: 201307, end: 201404
  2. TRAVATAN POLYQUAD [Suspect]
     Indication: GLAUCOMA
     Dosage: 1 DRP, EVERY NIGHT
     Route: 047
     Dates: start: 2007
  3. ECOFILM [Concomitant]
     Indication: PROPHYLAXIS
     Dosage: 5 ML, UNK

REACTIONS (3)
  - Cataract [Not Recovered/Not Resolved]
  - Visual impairment [Not Recovered/Not Resolved]
  - Vision blurred [Not Recovered/Not Resolved]
